FAERS Safety Report 9927808 (Version 2)
Quarter: 2016Q2

REPORT INFORMATION
  Report Type: Report from Study
  Country: US (occurrence: US)
  Receive Date: 20140227
  Receipt Date: 20160429
  Transmission Date: 20160815
  Serious: Yes (Other)
  Sender: FDA-Public Use
  Company Number: US-ROCHE-1342145

PATIENT
  Sex: Female

DRUGS (3)
  1. AVASTIN [Suspect]
     Active Substance: BEVACIZUMAB
     Indication: PRODUCT USED FOR UNKNOWN INDICATION
     Dosage: 18/JUN/2009 (IN LEFT EYE), 04/SEP/2009 (IN LEFT EYE), 27/APR/2010 (IN LEFT EYE), 07/JUN/2010(IN BOTH
     Route: 065
  2. LUCENTIS [Suspect]
     Active Substance: RANIBIZUMAB
     Indication: CHORIORETINAL ATROPHY
     Dosage: 30/NOV/2010 (IN BOTH EYES), 06/JAN/2011 (IN BOTH EYES), 08/FEB/2011 (IN BOTH EYES), 08/MAR/2011 (IN
     Route: 050
  3. LUCENTIS [Suspect]
     Active Substance: RANIBIZUMAB
     Indication: NEOVASCULAR AGE-RELATED MACULAR DEGENERATION

REACTIONS (4)
  - Eye infection [Unknown]
  - Visual acuity reduced [Unknown]
  - Off label use [Unknown]
  - Vision blurred [Unknown]
